FAERS Safety Report 9988233 (Version 1)
Quarter: 2014Q1

REPORT INFORMATION
  Report Type: Report from Study
  Country: DE (occurrence: DE)
  Receive Date: 20140309
  Receipt Date: 20140309
  Transmission Date: 20141002
  Serious: Yes (Death)
  Sender: FDA-Public Use
  Company Number: DE-BRISTOL-MYERS SQUIBB COMPANY-20383949

PATIENT
  Age: 58 Year
  Sex: Male
  Weight: 70 kg

DRUGS (6)
  1. ERBITUX SOLN FOR INF [Suspect]
     Indication: SQUAMOUS CELL CARCINOMA OF HEAD AND NECK
     Route: 042
     Dates: start: 20140114
  2. 5-FLUOROURACIL [Concomitant]
     Indication: SQUAMOUS CELL CARCINOMA OF HEAD AND NECK
     Route: 042
  3. CARBOPLATIN [Concomitant]
     Indication: SQUAMOUS CELL CARCINOMA OF HEAD AND NECK
     Route: 042
     Dates: start: 20140114
  4. CORTISONE [Concomitant]
     Indication: PREMEDICATION
     Route: 042
     Dates: start: 20140114, end: 20140121
  5. PEPDUL [Concomitant]
     Indication: PREMEDICATION
     Dates: start: 20140114, end: 20140121
  6. ZOFRAN [Concomitant]
     Indication: PREMEDICATION
     Dates: start: 20140114, end: 20140121

REACTIONS (2)
  - Anaemia [Fatal]
  - Haemorrhage [Fatal]
